FAERS Safety Report 9110461 (Version 1)
Quarter: 2013Q1

REPORT INFORMATION
  Report Type: Spontaneous
  Country: US (occurrence: US)
  Receive Date: 20130219
  Receipt Date: 20130219
  Transmission Date: 20140127
  Serious: Yes (Other)
  Sender: FDA-Public Use
  Company Number: US-BRACCO-008657

PATIENT
  Age: 70 Year
  Sex: Female

DRUGS (2)
  1. ISOVUE [Suspect]
     Indication: ARTERIOVENOUS FISTULA OCCLUSION
     Route: 042
     Dates: start: 20120927, end: 20120927
  2. ISOVUE [Suspect]
     Indication: FISTULOGRAM
     Route: 042
     Dates: start: 20120927, end: 20120927

REACTIONS (2)
  - Hypersensitivity [Recovering/Resolving]
  - Convulsion [Recovering/Resolving]
